FAERS Safety Report 9030980 (Version 1)
Quarter: 2013Q1

REPORT INFORMATION
  Report Type: Report from Study
  Country: CN (occurrence: CN)
  Receive Date: 20130123
  Receipt Date: 20130123
  Transmission Date: 20140127
  Serious: Yes (Death)
  Sender: FDA-Public Use
  Company Number: CN-ROCHE-GNE321764

PATIENT
  Age: 35 Year
  Sex: Female
  Weight: 77.08 kg

DRUGS (3)
  1. SERETIDE [Concomitant]
     Indication: ASTHMA
     Dosage: UNK
     Route: 065
     Dates: start: 201102
  2. SALBUTAMOL [Concomitant]
     Indication: PRODUCT USED FOR UNKNOWN INDICATION
  3. OMALIZUMAB [Suspect]
     Indication: ASTHMA
     Dosage: UNK MG, UNK
     Route: 058
     Dates: start: 20110620

REACTIONS (1)
  - Asthma [Fatal]
